FAERS Safety Report 17821963 (Version 2)
Quarter: 2020Q3

REPORT INFORMATION
  Report Type: Spontaneous
  Country: RU (occurrence: RU)
  Receive Date: 20200526
  Receipt Date: 20200727
  Transmission Date: 20201102
  Serious: Yes (Other)
  Sender: FDA-Public Use
  Company Number: RU-BRISTOL-MYERS SQUIBB COMPANY-BMS-2020-040391

PATIENT
  Age: 70 Year
  Sex: Female

DRUGS (1)
  1. OPDIVO [Suspect]
     Active Substance: NIVOLUMAB
     Indication: BRONCHIAL CARCINOMA
     Dosage: UNAV
     Route: 065

REACTIONS (6)
  - Loss of consciousness [Unknown]
  - Cardiomyopathy [Unknown]
  - Intentional product use issue [Unknown]
  - Hypothermia [Unknown]
  - Decreased appetite [Unknown]
  - Asthenia [Unknown]
